FAERS Safety Report 9226794 (Version 1)
Quarter: 2013Q2

REPORT INFORMATION
  Report Type: Spontaneous
  Country: US (occurrence: None)
  Receive Date: 20130410
  Receipt Date: 20130410
  Transmission Date: 20140414
  Serious: Yes (Hospitalization, Other)
  Sender: FDA-Public Use
  Company Number: None

PATIENT
  Age: 55 Year
  Sex: Female
  Weight: 72.57 kg

DRUGS (1)
  1. LISINOPRIL 20 MG [Suspect]
     Indication: HYPERTENSION
     Route: 048
     Dates: start: 20130327

REACTIONS (3)
  - Dysphagia [None]
  - Speech disorder [None]
  - Angioedema [None]
